FAERS Safety Report 6377408-0 (Version None)
Quarter: 2009Q3

REPORT INFORMATION
  Report Type: 
  Country: None (occurrence: None)
  Receive Date: 20090925
  Receipt Date: 20090916
  Transmission Date: 20100115
  Serious: Yes (Other)
  Sender: FDA-Public Use
  Company Number: IT-JNJFOC-20090907429

PATIENT
  Age: 37 Year
  Sex: Male

DRUGS (7)
  1. PIMOZIDE [Suspect]
     Indication: TOURETTE'S DISORDER
     Route: 065
  2. TRAMADOL HCL [Suspect]
     Indication: TOURETTE'S DISORDER
     Route: 065
  3. TIAPRIDE [Suspect]
     Indication: TOURETTE'S DISORDER
     Route: 065
  4. BOTULINUM TOXIN [Suspect]
     Indication: TOURETTE'S DISORDER
     Route: 065
  5. ARIPIPRAZOLE [Suspect]
     Indication: TOURETTE'S DISORDER
     Route: 065
  6. SELECTIVE SEROTONIN REUPTAKE INHIBITORS [Suspect]
     Indication: TOURETTE'S DISORDER
     Route: 065
  7. HALOPERIDOL [Concomitant]
     Indication: TOURETTE'S DISORDER
     Route: 065

REACTIONS (5)
  - ANXIETY [None]
  - DRUG INEFFECTIVE [None]
  - DRY SKIN [None]
  - PARKINSONISM [None]
  - SOMNOLENCE [None]
